FAERS Safety Report 4404508-4 (Version None)
Quarter: 2004Q3

REPORT INFORMATION
  Report Type: 
  Country: None (occurrence: None)
  Receive Date: 20040720
  Receipt Date: 20040707
  Transmission Date: 20050211
  Serious: Yes (Disabling, Other)
  Sender: FDA-Public Use
  Company Number: HQWYE968209JUL04

PATIENT
  Age: 38 Year
  Sex: Female
  Weight: 62.2 kg

DRUGS (1)
  1. EFFEXOR XR [Suspect]
     Indication: DEPRESSION
     Dosage: 75 MG 1 X PER 1 DAY, ORAL
     Route: 048

REACTIONS (13)
  - ALCOHOLISM [None]
  - CHEST DISCOMFORT [None]
  - CONFUSIONAL STATE [None]
  - DRUG EFFECT DECREASED [None]
  - DYSPNOEA [None]
  - HEAT STROKE [None]
  - IMPAIRED DRIVING ABILITY [None]
  - IMPAIRED WORK ABILITY [None]
  - IMPRISONMENT [None]
  - NIGHTMARE [None]
  - PHOTOPHOBIA [None]
  - SUICIDAL IDEATION [None]
  - VISUAL DISTURBANCE [None]
